FAERS Safety Report 21028550 (Version 2)
Quarter: 2022Q3

REPORT INFORMATION
  Report Type: Spontaneous
  Country: US (occurrence: None)
  Receive Date: 20220630
  Receipt Date: 20220811
  Transmission Date: 20221027
  Serious: No
  Sender: FDA-Public Use
  Company Number: 2022A229862

PATIENT
  Age: 26683 Day
  Sex: Female
  Weight: 112 kg

DRUGS (1)
  1. BUDESONIDE\FORMOTEROL\GLYCOPYRRONIUM [Suspect]
     Active Substance: BUDESONIDE\FORMOTEROL\GLYCOPYRRONIUM
     Indication: Chronic obstructive pulmonary disease
     Dosage: 160 MCG/ 9 MCG/ 4.8 MCG 2 PUFFS TWO TIMES A DAY
     Route: 055
     Dates: start: 20220531

REACTIONS (7)
  - Dyspnoea [Not Recovered/Not Resolved]
  - Nocturnal dyspnoea [Unknown]
  - Vision blurred [Unknown]
  - Oxygen saturation decreased [Unknown]
  - Device use issue [Unknown]
  - Wrong technique in device usage process [Unknown]
  - Device delivery system issue [Unknown]

NARRATIVE: CASE EVENT DATE: 20220617
